FAERS Safety Report 25136120 (Version 2)
Quarter: 2025Q2

REPORT INFORMATION
  Report Type: Spontaneous
  Country: JP (occurrence: JP)
  Receive Date: 20250328
  Receipt Date: 20250428
  Transmission Date: 20250717
  Serious: Yes (Hospitalization)
  Sender: ORGANON
  Company Number: JP-ORGANON-O2503JPN002843

PATIENT
  Age: 49 Year
  Sex: Male
  Weight: 90 kg

DRUGS (1)
  1. VTAMA [Suspect]
     Active Substance: TAPINAROF
     Indication: Psoriasis
     Dosage: 3 GRAM, QD
     Route: 061
     Dates: start: 20241204, end: 20241210

REACTIONS (1)
  - Application site cellulitis [Recovered/Resolved]

NARRATIVE: CASE EVENT DATE: 20241208
